FAERS Safety Report 5205355-6 (Version None)
Quarter: 2007Q1

REPORT INFORMATION
  Report Type: 
  Country: None (occurrence: None)
  Receive Date: 20070108
  Receipt Date: 20061222
  Transmission Date: 20070707
  Serious: No
  Sender: FDA-Public Use
  Company Number: TPA2006A01759

PATIENT
  Age: 40 Year
  Sex: Female
  Weight: 101.6057 kg

DRUGS (7)
  1. ACTOS [Suspect]
     Indication: DIABETES MELLITUS NON-INSULIN-DEPENDENT
     Dosage: SEE IMAGE
     Route: 048
     Dates: start: 20060901, end: 20060922
  2. ACTOS [Suspect]
     Indication: DIABETES MELLITUS NON-INSULIN-DEPENDENT
     Dosage: SEE IMAGE
     Route: 048
     Dates: start: 20060922
  3. ZELNORM [Concomitant]
  4. TRIAM/HCTZ (HYDROCHLOROTHIAZIDE, TRIAMTERENE) [Concomitant]
  5. PAXIL [Concomitant]
  6. GEODON [Concomitant]
  7. TRAZODONE HCL [Concomitant]

REACTIONS (3)
  - DRUG DISPENSING ERROR [None]
  - FATIGUE [None]
  - SOMNOLENCE [None]
